FAERS Safety Report 10155113 (Version 1)
Quarter: 2014Q2

REPORT INFORMATION
  Report Type: Spontaneous
  Country: US (occurrence: None)
  Receive Date: 20140505
  Receipt Date: 20140505
  Transmission Date: 20141212
  Serious: Yes (Other)
  Sender: FDA-Public Use
  Company Number: None

PATIENT
  Age: 50 Year
  Sex: Male
  Weight: 65.77 kg

DRUGS (2)
  1. AZITHROMYCIN 250 MG [Suspect]
     Indication: OROPHARYNGEAL PAIN
     Dosage: 6 PILLS, 2 DL, 1 DAYS 2-5, TAKEN BY MOUTH
     Route: 048
     Dates: start: 20140416, end: 20140420
  2. AZITHROMYCIN 250 MG [Suspect]
     Indication: PULMONARY CONGESTION
     Dosage: 6 PILLS, 2 DL, 1 DAYS 2-5, TAKEN BY MOUTH
     Route: 048
     Dates: start: 20140416, end: 20140420

REACTIONS (2)
  - Chest pain [None]
  - Rash [None]
